FAERS Safety Report 4630147-6 (Version None)
Quarter: 2005Q2

REPORT INFORMATION
  Report Type: 
  Country: None (occurrence: None)
  Receive Date: 20050408
  Receipt Date: 20050228
  Transmission Date: 20051028
  Serious: Yes (Hospitalization, Other)
  Sender: FDA-Public Use
  Company Number: PHHO2005US03605

PATIENT
  Age: 54 Year
  Sex: Male
  Weight: 91 kg

DRUGS (16)
  1. NEORAL [Suspect]
     Indication: LIVER TRANSPLANT
     Dosage: 175 MG, BID
     Route: 048
     Dates: start: 20050218
  2. NEORAL [Suspect]
     Dosage: 500 MG, BID
     Route: 048
     Dates: start: 20050216, end: 20050218
  3. NEORAL [Suspect]
     Dosage: 100 MG, BID
     Dates: start: 20050210, end: 20050210
  4. NEORAL [Suspect]
     Dosage: 50 MG, BID
     Route: 048
     Dates: start: 20050208, end: 20050209
  5. NEORAL [Suspect]
     Dosage: 200 MG, BID
     Dates: start: 20050211, end: 20050211
  6. NEORAL [Suspect]
     Dosage: 300 MG, BID
     Dates: start: 20050212, end: 20050212
  7. NEORAL [Suspect]
     Dosage: 400 MG, BID
     Dates: start: 20050213, end: 20050213
  8. NEORAL [Suspect]
     Dosage: 450 MG, BID
     Dates: start: 20050214, end: 20050214
  9. MYCOPHENOLATE MOFETIL [Concomitant]
     Indication: LIVER TRANSPLANT
     Dosage: 1 G, BID
     Route: 048
     Dates: start: 20050205, end: 20050216
  10. MYCOPHENOLATE MOFETIL [Concomitant]
     Dosage: 1.5 G, BID
     Route: 048
     Dates: start: 20050216, end: 20050217
  11. PREDNISONE [Concomitant]
     Indication: LIVER TRANSPLANT
     Dosage: 15 MG DAILY DOSE
     Route: 048
     Dates: start: 20050214
  12. ACYCLOVIR [Concomitant]
     Dosage: 800 MG, TID
     Route: 048
     Dates: start: 20050217
  13. FLUCONAZOLE [Concomitant]
     Dosage: 200 MG DAILY DOSE
     Route: 048
     Dates: start: 20050206
  14. ASPIRIN [Concomitant]
     Dosage: 81 MG DAILY DOSE
     Route: 048
     Dates: start: 20050206
  15. OSCAL [Concomitant]
     Dosage: 500 MG DAILY DOSE
     Route: 048
     Dates: start: 20050210
  16. QUETIAPINE [Concomitant]
     Dosage: 25 MG, QHS
     Route: 048
     Dates: start: 20050215

REACTIONS (6)
  - BLOOD BILIRUBIN INCREASED [None]
  - BLOOD CREATININE INCREASED [None]
  - CHOLESTASIS [None]
  - LIVER FUNCTION TEST ABNORMAL [None]
  - LIVER TRANSPLANT REJECTION [None]
  - NEPHROPATHY TOXIC [None]
